FAERS Safety Report 8282693 (Version 2)
Quarter: 2012Q4

REPORT INFORMATION
  Report Type: Report from Study
  Country: FR (occurrence: FR)
  Receive Date: 20111209
  Receipt Date: 20121016
  Transmission Date: 20130627
  Serious: Yes (Other)
  Sender: FDA-Public Use
  Company Number: FR-ROCHE-1011088

PATIENT
  Age: 69 Year
  Weight: 61 kg

DRUGS (13)
  1. MYCOPHENOLATE MOFETIL [Suspect]
     Indication: KIDNEY TRANSPLANT REJECTION
     Route: 048
     Dates: start: 20101011
  2. EVEROLIMUS [Suspect]
     Indication: KIDNEY TRANSPLANT REJECTION
     Route: 048
     Dates: start: 20101119, end: 20110926
  3. PREDNISONE [Suspect]
     Indication: KIDNEY TRANSPLANT REJECTION
     Route: 048
     Dates: start: 20101012
  4. INIPOMP [Concomitant]
     Route: 065
     Dates: start: 20101012
  5. PREVISCAN [Concomitant]
     Route: 065
     Dates: start: 20110213, end: 20110913
  6. ESIDREX [Concomitant]
     Route: 065
     Dates: start: 20110810
  7. TEMERIT [Concomitant]
     Route: 065
     Dates: start: 20101105
  8. NOCTRAN [Concomitant]
     Route: 065
     Dates: start: 20101026
  9. CALCIDIA [Concomitant]
     Route: 065
     Dates: start: 20110215, end: 20110809
  10. LANTUS [Concomitant]
     Route: 058
  11. NOVORAPID [Concomitant]
     Route: 058
     Dates: start: 20101026
  12. CRESTOR [Concomitant]
     Route: 048
     Dates: start: 20110706
  13. BACTRIM [Concomitant]
     Route: 065
     Dates: start: 20110301

REACTIONS (1)
  - Transplant rejection [Not Recovered/Not Resolved]
